FAERS Safety Report 5244770-1 (Version None)
Quarter: 2007Q1

REPORT INFORMATION
  Report Type: 
  Country: None (occurrence: None)
  Receive Date: 20070216
  Receipt Date: 20070207
  Transmission Date: 20070707
  Serious: Yes (Death)
  Sender: FDA-Public Use
  Company Number: FABR-11823

PATIENT
  Age: 49 Year
  Weight: 49.7 kg

DRUGS (3)
  1. FABRAZYME [Suspect]
     Indication: FABRY'S DISEASE
     Dosage: 1.3 MG/KG Q2WKS; IV
     Route: 042
     Dates: end: 20061226
  2. FABRAZYME [Suspect]
     Indication: FABRY'S DISEASE
     Dosage: 3 MG/KG Q2WKS; IV
     Route: 042
     Dates: start: 20030101
  3. FABRAZYME [Suspect]
     Indication: FABRY'S DISEASE
     Dosage: 1.3 MG/KG Q2WKS; IV
     Route: 042
     Dates: start: 20010314

REACTIONS (8)
  - CACHEXIA [None]
  - COMPLICATIONS OF TRANSPLANTED KIDNEY [None]
  - GANGRENE [None]
  - HAEMODIALYSIS [None]
  - RENAL FAILURE [None]
  - RENAL TRANSPLANT [None]
  - SEPSIS [None]
  - TRANSPLANT REJECTION [None]
